FAERS Safety Report 9409471 (Version 3)
Quarter: 2013Q3

REPORT INFORMATION
  Report Type: Spontaneous
  Country: US (occurrence: None)
  Receive Date: 20130401
  Receipt Date: 20130801
  Transmission Date: 20140515
  Serious: Yes (Death, Hospitalization)
  Sender: FDA-Public Use
  Company Number: 147061

PATIENT
  Age: 59 Year
  Sex: Male
  Weight: 97 kg

DRUGS (1)
  1. LEUCOVORIN CALCIUM FOR INJ. 50MG [Suspect]
     Indication: COLORECTAL CANCER
     Dosage: EVERY 14 DAYS
     Route: 042
     Dates: start: 20130213

REACTIONS (13)
  - Respiratory failure [None]
  - Lung infiltration [None]
  - Pyrexia [None]
  - Streptococcus test positive [None]
  - Creatinine renal clearance increased [None]
  - Blood albumin decreased [None]
  - Blood uric acid decreased [None]
  - Protein total decreased [None]
  - Weight decreased [None]
  - Pulmonary mass [None]
  - Confusional state [None]
  - Interstitial lung disease [None]
  - Hypotension [None]
